FAERS Safety Report 7447929-8 (Version None)
Quarter: 2011Q2

REPORT INFORMATION
  Report Type: 
  Country: None (occurrence: None)
  Receive Date: 20110429
  Receipt Date: 20110420
  Transmission Date: 20111010
  Serious: Yes (Other)
  Sender: FDA-Public Use
  Company Number: AU-ASTRAZENECA-2011SE23113

PATIENT
  Age: 81 Year
  Sex: Male

DRUGS (1)
  1. ZOLADEX [Suspect]
     Route: 058
     Dates: start: 20060101

REACTIONS (3)
  - ARTERIAL DISORDER [None]
  - METASTASIS [None]
  - VISUAL ACUITY REDUCED [None]
